FAERS Safety Report 5416969-2 (Version None)
Quarter: 2007Q3

REPORT INFORMATION
  Report Type: 
  Country: None (occurrence: None)
  Receive Date: 20070816
  Receipt Date: 20070807
  Transmission Date: 20080115
  Serious: Yes (Other)
  Sender: FDA-Public Use
  Company Number: IN-PFIZER INC-2007066183

PATIENT
  Age: 25 Year
  Sex: Male

DRUGS (1)
  1. SOLU-MEDROL [Suspect]
     Indication: SPINAL CORD INJURY
     Dosage: DAILY DOSE:8GRAM-TEXT:5.4 MG/KG/HR  FOR 2 DAYS TDD:8 G
     Route: 042
     Dates: start: 20070724, end: 20070725

REACTIONS (1)
  - HAEMORRHAGE [None]
